FAERS Safety Report 8487991-7 (Version None)
Quarter: 2012Q3

REPORT INFORMATION
  Report Type: 
  Country: None (occurrence: None)
  Receive Date: 20120705
  Receipt Date: 20120702
  Transmission Date: 20120928
  Serious: Yes (Death)
  Sender: FDA-Public Use
  Company Number: PHEH2012US010185

PATIENT
  Sex: Female
  Weight: 125 kg

DRUGS (8)
  1. ISTASOL [Concomitant]
     Dosage: 0.5 %, UNK
  2. FLEXAGEN [Concomitant]
  3. LUMIGAN [Concomitant]
     Dosage: 0.01 %, UNK
  4. GABAPENTIN [Concomitant]
     Dosage: 100 MG, UNK
  5. IRON [Concomitant]
     Dosage: 18 MG, UNK
  6. ZOCOR [Concomitant]
     Dosage: 10 MG, UNK
  7. CALCIUM [Concomitant]
     Dosage: 500 OT, UNK
  8. AFINITOR [Suspect]
     Indication: BREAST CANCER
     Dosage: 10 MG, DAILY
     Route: 048
     Dates: start: 20120208, end: 20120409

REACTIONS (2)
  - NEOPLASM PROGRESSION [None]
  - NEOPLASM MALIGNANT [None]
